FAERS Safety Report 23565753 (Version 2)
Quarter: 2024Q1

REPORT INFORMATION
  Report Type: Spontaneous
  Country: CN (occurrence: CN)
  Receive Date: 20240226
  Receipt Date: 20240311
  Transmission Date: 20240410
  Serious: Yes (Hospitalization, Other)
  Sender: FDA-Public Use
  Company Number: CN-MLMSERVICE-20240207-4819191-1

PATIENT
  Age: 66 Year
  Sex: Male
  Weight: 47.5 kg

DRUGS (10)
  1. MEROPENEM [Interacting]
     Active Substance: MEROPENEM
     Indication: Antibiotic therapy
     Dosage: UNK
     Route: 065
  2. MEROPENEM [Interacting]
     Active Substance: MEROPENEM
     Indication: Infection
  3. METHOTREXATE [Interacting]
     Active Substance: METHOTREXATE
     Indication: Rheumatoid arthritis
     Dosage: LOW-DOSE
     Route: 065
  4. CEPHALOTHIN [Interacting]
     Active Substance: CEPHALOTHIN
     Indication: Antibiotic therapy
     Dosage: UNK
     Route: 065
  5. CEPHALOTHIN [Interacting]
     Active Substance: CEPHALOTHIN
     Indication: Infection
  6. DEXKETOPROFEN [Interacting]
     Active Substance: DEXKETOPROFEN
     Indication: Arthralgia
     Dosage: UNK
     Route: 065
  7. OMEPRAZOLE [Suspect]
     Active Substance: OMEPRAZOLE
     Indication: Stress ulcer
     Dosage: UNK
     Route: 065
  8. RABEPRAZOLE [Suspect]
     Active Substance: RABEPRAZOLE
     Indication: Stress ulcer
     Dosage: UNK
     Route: 065
  9. PANTOPRAZOLE [Suspect]
     Active Substance: PANTOPRAZOLE
     Indication: Stress ulcer
     Dosage: UNK
     Route: 065
  10. IBUPROFEN [Interacting]
     Active Substance: IBUPROFEN
     Indication: Arthralgia
     Dosage: UNK
     Route: 065

REACTIONS (5)
  - Immunosuppressant drug level increased [None]
  - Myelosuppression [None]
  - Drug interaction [None]
  - Pancytopenia [None]
  - Anaemia [None]
